FAERS Safety Report 6029480-5 (Version None)
Quarter: 2009Q1

REPORT INFORMATION
  Report Type: 
  Country: None (occurrence: None)
  Receive Date: 20090105
  Receipt Date: 20090105
  Transmission Date: 20090719
  Serious: No
  Sender: FDA-Public Use
  Company Number: None

PATIENT
  Age: 69 Year
  Sex: Female
  Weight: 68.9467 kg

DRUGS (5)
  1. ACTONEL [Suspect]
     Indication: OSTEOPOROSIS
     Dosage: 150 MG ONCE PER MONTH ORALLY
     Route: 048
     Dates: start: 20080920
  2. SYNTHROID [Concomitant]
  3. NORVASC [Concomitant]
  4. RED YEAST RICE TABLETS [Concomitant]
  5. CITRACAL - VITAMIN D WITH CALCIUM [Concomitant]

REACTIONS (14)
  - ARTHRALGIA [None]
  - ARTHRITIS [None]
  - CHEST PAIN [None]
  - DYSPNOEA [None]
  - FEELING OF BODY TEMPERATURE CHANGE [None]
  - GAIT DISTURBANCE [None]
  - HEADACHE [None]
  - INFLUENZA [None]
  - JOINT EFFUSION [None]
  - JOINT SWELLING [None]
  - MALAISE [None]
  - MOVEMENT DISORDER [None]
  - MUSCULOSKELETAL STIFFNESS [None]
  - NECK PAIN [None]
